FAERS Safety Report 6020824-7 (Version None)
Quarter: 2008Q4

REPORT INFORMATION
  Report Type: 
  Country: None (occurrence: None)
  Receive Date: 20081229
  Receipt Date: 20081225
  Transmission Date: 20090506
  Serious: Yes (Life-Threatening)
  Sender: FDA-Public Use
  Company Number: JP-JNJFOC-20081201550

PATIENT
  Age: 84 Year
  Sex: Male
  Weight: 50 kg

DRUGS (10)
  1. FENTANYL [Suspect]
     Indication: NEURALGIA
     Route: 062
  2. FENTANYL [Suspect]
     Indication: PAIN
     Route: 062
  3. FENTANYL [Suspect]
     Indication: LARGE INTESTINE CARCINOMA
     Route: 062
  4. CEPHADOL [Concomitant]
     Indication: CEREBRAL INFARCTION
     Route: 048
  5. GASTER [Concomitant]
     Indication: PEPTIC ULCER
     Route: 048
  6. HERBESSER [Concomitant]
     Indication: HYPERTENSION
     Route: 048
  7. CYANOCOBALAMIN [Concomitant]
     Indication: NEURALGIA
     Route: 048
  8. SERENACE [Concomitant]
     Route: 048
  9. SERENACE [Concomitant]
     Indication: DELIRIUM
     Route: 048
  10. CONCENTRATED RED CELLS [Concomitant]
     Dosage: 2 LU
     Route: 041

REACTIONS (3)
  - ASTHMA [None]
  - OXYGEN SATURATION DECREASED [None]
  - PYREXIA [None]
